FAERS Safety Report 7371740-X (Version None)
Quarter: 2011Q1

REPORT INFORMATION
  Report Type: 
  Country: None (occurrence: None)
  Receive Date: 20110324
  Receipt Date: 20110315
  Transmission Date: 20110831
  Serious: Yes (Other)
  Sender: FDA-Public Use
  Company Number: CA-ROCHE-751330

PATIENT
  Sex: Female
  Weight: 77.1 kg

DRUGS (6)
  1. TOCILIZUMAB [Suspect]
     Indication: RHEUMATOID ARTHRITIS
     Dosage: FREQUENCY: 4 WEEKS FORM: INFUSION.
     Route: 042
     Dates: start: 20100928, end: 20100928
  2. PREDNISONE [Concomitant]
     Indication: RHEUMATOID ARTHRITIS
  3. ARAVA [Concomitant]
  4. AVALIDE [Concomitant]
     Indication: BLOOD PRESSURE
  5. CELEBREX [Concomitant]
  6. CALCIUM [Concomitant]

REACTIONS (2)
  - LOCALISED INFECTION [None]
  - WOUND [None]
